FAERS Safety Report 13362739 (Version 2)
Quarter: 2017Q2

REPORT INFORMATION
  Report Type: Report from Study
  Country: None (occurrence: US)
  Receive Date: 20170323
  Receipt Date: 20170523
  Transmission Date: 20170830
  Serious: Yes (Hospitalization)
  Sender: FDA-Public Use
  Company Number: US-ABBVIE-17K-163-1912441-00

PATIENT
  Age: 74 Year
  Sex: Female

DRUGS (2)
  1. STELARA [Suspect]
     Active Substance: USTEKINUMAB
     Indication: CROHN^S DISEASE
     Route: 065
     Dates: start: 201702
  2. HUMIRA [Suspect]
     Active Substance: ADALIMUMAB
     Indication: CROHN^S DISEASE
     Route: 058
     Dates: end: 201701

REACTIONS (11)
  - Loss of consciousness [Unknown]
  - Defaecation urgency [Unknown]
  - Blood magnesium decreased [Unknown]
  - Vomiting [Unknown]
  - Haematemesis [Unknown]
  - Pyrexia [Unknown]
  - Drug ineffective [Unknown]
  - Crohn^s disease [Unknown]
  - Gastric ulcer haemorrhage [Unknown]
  - Gait disturbance [Unknown]
  - Weight decreased [Unknown]

NARRATIVE: CASE EVENT DATE: 2017
